FAERS Safety Report 13113292 (Version 2)
Quarter: 2017Q1

REPORT INFORMATION
  Report Type: Spontaneous
  Country: DE (occurrence: DE)
  Receive Date: 20170113
  Receipt Date: 20170202
  Transmission Date: 20170428
  Serious: Yes (Hospitalization, Disabling, Other)
  Sender: FDA-Public Use
  Company Number: DE-TEVA-730055GER

PATIENT
  Sex: Male

DRUGS (1)
  1. ALENDRONIC ACID [Suspect]
     Active Substance: ALENDRONIC ACID
     Indication: PRODUCT USED FOR UNKNOWN INDICATION
     Route: 048
     Dates: start: 200805, end: 201402

REACTIONS (5)
  - Osteonecrosis of jaw [Unknown]
  - Abscess jaw [Unknown]
  - Pain in jaw [Not Recovered/Not Resolved]
  - Teeth brittle [Unknown]
  - Osteitis [Unknown]

NARRATIVE: CASE EVENT DATE: 20140206
